FAERS Safety Report 9161440 (Version 1)
Quarter: 2013Q1

REPORT INFORMATION
  Report Type: Spontaneous
  Country: US (occurrence: US)
  Receive Date: 20130313
  Receipt Date: 20130313
  Transmission Date: 20140127
  Serious: No
  Sender: FDA-Public Use
  Company Number: US-009507513-1303USA004721

PATIENT
  Age: 19 Year
  Sex: Female
  Weight: 86.17 kg

DRUGS (2)
  1. IMPLANON [Suspect]
     Indication: CONTRACEPTION
     Dosage: 1 ROD UP TO 3 YEARSUNK
  2. IMPLANON [Suspect]
     Dosage: 1 ROD UP TO 3 YEARS

REACTIONS (1)
  - Tenderness [Unknown]
